FAERS Safety Report 12960185 (Version 1)
Quarter: 2016Q4

REPORT INFORMATION
  Report Type: Spontaneous
  Country: US (occurrence: US)
  Receive Date: 20161119
  Receipt Date: 20161119
  Transmission Date: 20170207
  Serious: Yes (Disabling, Other)
  Sender: FDA-Public Use
  Company Number: None

PATIENT
  Age: 39 Year
  Sex: Male
  Weight: 117 kg

DRUGS (3)
  1. VALIUM [Concomitant]
     Active Substance: DIAZEPAM
  2. AZO BLADDER CONTROL [Concomitant]
  3. SUBUTEX [Suspect]
     Active Substance: BUPRENORPHINE HYDROCHLORIDE
     Indication: DRUG DEPENDENCE
     Dosage: QUANTITY:1 WAX SQUARE; DAILY; SUBLINGUAL?
     Route: 060

REACTIONS (5)
  - Hypersensitivity [None]
  - Pain [None]
  - Withdrawal syndrome [None]
  - Peripheral swelling [None]
  - Micturition urgency [None]

NARRATIVE: CASE EVENT DATE: 20161118
